FAERS Safety Report 6510140-9 (Version None)
Quarter: 2009Q4

REPORT INFORMATION
  Report Type: 
  Country: None (occurrence: None)
  Receive Date: 20091222
  Receipt Date: 20091216
  Transmission Date: 20100525
  Serious: Yes (Hospitalization)
  Sender: FDA-Public Use
  Company Number: B0616629A

PATIENT
  Sex: Female

DRUGS (9)
  1. AUGMENTIN '125' [Suspect]
     Dosage: 250MG THREE TIMES PER DAY
     Route: 048
     Dates: start: 20091211
  2. LOXONIN [Suspect]
     Indication: DRUG USE FOR UNKNOWN INDICATION
     Route: 048
     Dates: start: 20091211
  3. AMARYL [Concomitant]
     Route: 048
  4. MIGLITOL [Concomitant]
     Route: 048
  5. NORVASC [Concomitant]
     Route: 048
  6. EVISTA [Concomitant]
     Route: 048
  7. TOLEDOMIN [Concomitant]
     Route: 048
  8. POLLAKISU [Concomitant]
     Route: 048
  9. TETRAMIDE [Concomitant]
     Route: 048

REACTIONS (1)
  - LOSS OF CONSCIOUSNESS [None]
